FAERS Safety Report 8551564 (Version 16)
Quarter: 2013Q3

REPORT INFORMATION
  Report Type: Report from Study
  Country: NL (occurrence: NL)
  Receive Date: 20120508
  Receipt Date: 20130712
  Transmission Date: 20140515
  Serious: Yes (Death, Life-Threatening, Hospitalization, Other)
  Sender: FDA-Public Use
  Company Number: NL-ASTRAZENECA-2012SE28061

PATIENT
  Age: 25004 Day
  Sex: Male

DRUGS (13)
  1. AZD6140 [Suspect]
     Indication: CORONARY ARTERY DISEASE
     Route: 048
     Dates: start: 20110701, end: 20120426
  2. ASA [Concomitant]
     Indication: CORONARY ARTERY DISEASE
     Route: 042
     Dates: start: 20120423, end: 20120423
  3. ASA [Concomitant]
     Indication: CORONARY ARTERY DISEASE
     Route: 048
     Dates: end: 20120425
  4. PANTOPRAZOL [Concomitant]
     Indication: GASTROOESOPHAGEAL REFLUX DISEASE
     Route: 048
  5. SIMVASTATINE [Concomitant]
     Indication: HYPERCHOLESTEROLAEMIA
     Route: 048
     Dates: end: 20120425
  6. FINASTERIDE AUROBINDO [Concomitant]
     Indication: BENIGN PROSTATIC HYPERPLASIA
     Route: 048
     Dates: end: 20120425
  7. METOPROLOL [Concomitant]
     Indication: HYPERTENSION
     Route: 048
     Dates: end: 20120423
  8. ZOFIL [Concomitant]
     Indication: CORONARY ARTERY DISEASE
     Route: 048
  9. CEFUROXIM [Concomitant]
     Indication: INFECTION
     Route: 042
     Dates: start: 20120423, end: 20120425
  10. METRONIDAZOL [Concomitant]
     Indication: INFECTION
     Route: 042
     Dates: start: 20120423, end: 20120425
  11. ASPEGIC [Concomitant]
     Indication: CORONARY ARTERY DISEASE
     Route: 042
     Dates: start: 20120423, end: 20120423
  12. DOBUTREX [Concomitant]
     Indication: HYPOTENSION
     Route: 042
     Dates: start: 20120423, end: 20120424
  13. NITRO [Concomitant]
     Indication: CHEST PAIN
     Route: 048
     Dates: start: 20120423, end: 20120423

REACTIONS (6)
  - Gastritis hypertrophic [Not Recovered/Not Resolved]
  - Gastric ulcer haemorrhage [Not Recovered/Not Resolved]
  - Renal failure [Not Recovered/Not Resolved]
  - Intestinal ischaemia [Fatal]
  - Iliac artery occlusion [Not Recovered/Not Resolved]
  - Cerebral ischaemia [Not Recovered/Not Resolved]
